FAERS Safety Report 5607594-9 (Version None)
Quarter: 2008Q1

REPORT INFORMATION
  Report Type: 
  Country: None (occurrence: None)
  Receive Date: 20080130
  Receipt Date: 20080123
  Transmission Date: 20080703
  Serious: Yes (Hospitalization)
  Sender: FDA-Public Use
  Company Number: PHNU2008DE00697

PATIENT
  Age: 65 Year
  Sex: Female

DRUGS (3)
  1. TAMSULOSIN HCL [Concomitant]
     Dates: start: 20070101, end: 20080101
  2. CERTOPARIN SODIUM /01691801/ [Concomitant]
     Indication: THROMBOSIS PROPHYLAXIS
     Dosage: 1 DF, QD
     Dates: start: 20080101
  3. EXFORGE [Suspect]
     Indication: HYPERTENSION
     Dosage: 10/160 MG/D
     Route: 048
     Dates: start: 20070101, end: 20080120

REACTIONS (3)
  - BLOOD PRESSURE DECREASED [None]
  - INGUINAL HERNIA REPAIR [None]
  - PAIN IN EXTREMITY [None]
